FAERS Safety Report 9649630 (Version 2)
Quarter: 2014Q1

REPORT INFORMATION
  Report Type: Spontaneous
  Country: JP (occurrence: JP)
  Receive Date: 20131028
  Receipt Date: 20140305
  Transmission Date: 20141002
  Serious: Yes (Hospitalization)
  Sender: FDA-Public Use
  Company Number: JP-MERCK-1310JPN011778

PATIENT
  Age: 60 Year
  Sex: Female

DRUGS (8)
  1. BONALON [Suspect]
     Indication: OSTEOPOROSIS PROPHYLAXIS
     Dosage: 35 MG/WEEK
     Route: 048
     Dates: start: 20130813, end: 20130924
  2. ESOMEPRAZOLE MAGNESIUM [Suspect]
     Indication: GASTRITIS PROPHYLAXIS
     Dosage: 20 MG, UNK
     Route: 048
     Dates: start: 20130809, end: 20130918
  3. ONEALFA [Concomitant]
     Dosage: 1 MICROGRAM, QD
     Route: 048
  4. URSODIOL [Concomitant]
     Route: 048
  5. PREDONINE [Concomitant]
  6. MYSLEE [Concomitant]
     Route: 048
  7. ZETIA TABLETS 10MG [Concomitant]
     Route: 048
  8. MAGMITT [Concomitant]
     Route: 048

REACTIONS (1)
  - Neutropenia [Recovered/Resolved]
